FAERS Safety Report 4603069-4 (Version None)
Quarter: 2005Q1

REPORT INFORMATION
  Report Type: 
  Country: None (occurrence: None)
  Receive Date: 20050307
  Receipt Date: 20050225
  Transmission Date: 20050727
  Serious: Yes (Disabling)
  Sender: FDA-Public Use
  Company Number: 2005-02-1687

PATIENT
  Age: 51 Year
  Sex: Female

DRUGS (4)
  1. AERIUS (DESLORATADINE) [Suspect]
     Indication: HYPERSENSITIVITY
     Dosage: 5 MG QD ORAL
     Route: 048
     Dates: start: 20040805, end: 20050101
  2. VIOXX [Suspect]
     Indication: PAIN
     Dosage: 25 MG QD ORAL
     Route: 048
     Dates: start: 20040101, end: 20040101
  3. AZITHROMYCIN [Suspect]
     Indication: INFECTION
     Dosage: 500 MG QD ORAL
     Route: 048
     Dates: start: 20040701, end: 20040701
  4. TRILEPTAL [Suspect]
     Indication: EPILEPSY
     Dosage: 300 MG BID ORAL
     Route: 048
     Dates: start: 20040804, end: 20041101

REACTIONS (4)
  - DIZZINESS [None]
  - DYSKINESIA [None]
  - FEELING ABNORMAL [None]
  - NAUSEA [None]
